FAERS Safety Report 7357353-4 (Version None)
Quarter: 2011Q1

REPORT INFORMATION
  Report Type: 
  Country: None (occurrence: None)
  Receive Date: 20110311
  Receipt Date: 20110311
  Transmission Date: 20110831
  Serious: Yes (Other)
  Sender: FDA-Public Use
  Company Number: None

PATIENT
  Sex: Male
  Weight: 77.2 kg

DRUGS (2)
  1. DECADRON [Concomitant]
  2. TEMODAR [Suspect]
     Indication: MALIGNANT MELANOMA
     Dosage: 561.6MG,ONCE,INTRAARTERI
     Route: 013
     Dates: start: 20110215

REACTIONS (3)
  - BLOOD CREATINE PHOSPHOKINASE INCREASED [None]
  - LYMPHOEDEMA [None]
  - DERMATITIS EXFOLIATIVE [None]
